FAERS Safety Report 8941950 (Version 1)
Quarter: 2012Q4

REPORT INFORMATION
  Report Type: 
  Country: US (occurrence: US)
  Receive Date: 20121203
  Receipt Date: 20121203
  Transmission Date: 20130627
  Serious: Yes (Congenital Anomaly, Other)
  Sender: FDA-Public Use
  Company Number: US-PFIZER INC-2012300283

PATIENT
  Sex: Male
  Weight: 3.51 kg

DRUGS (12)
  1. ZOLOFT [Suspect]
     Indication: DEPRESSION
     Dosage: 50 mg, 1x/day every morning
     Route: 064
     Dates: start: 20100420
  2. ZOLOFT [Suspect]
     Dosage: 100 mg, 1x/day
     Route: 064
     Dates: start: 20100604
  3. Z-PAK [Concomitant]
     Dosage: 250 mg, UNK
     Route: 064
  4. CETIRIZINE [Concomitant]
     Dosage: 10 mg, 1x/day
     Route: 064
  5. MUCINEX [Concomitant]
     Indication: CONGESTION NASAL
     Dosage: 600 mg, 2x/day
     Route: 064
  6. XOPENEX [Concomitant]
     Indication: WHEEZING
     Dosage: 45 ug, two puffs for every 4-6 hours
     Route: 064
  7. SYNTHROID [Concomitant]
     Indication: HYPOTHYROIDISM
     Dosage: 150 ug, 1x/day
     Route: 064
  8. PRENATAL VITAMINS [Concomitant]
     Dosage: UNK,  every day
     Route: 064
  9. CALTRATE WITH VITAMIN D [Concomitant]
     Dosage: 600 mg, 2x/day
     Route: 064
  10. FERROUS SULFATE [Concomitant]
     Dosage: 325 mg, 2x/day
     Route: 064
  11. FLAGYL [Concomitant]
     Dosage: 500 mg, 2x/day, for seven days
     Route: 064
  12. SINGULAIR [Concomitant]
     Dosage: 10 mg, 1x/day
     Route: 064

REACTIONS (4)
  - Maternal exposure timing unspecified [Unknown]
  - Patent ductus arteriosus [Unknown]
  - Atrial septal defect [Unknown]
  - Supraventricular tachycardia [Recovered/Resolved]
